FAERS Safety Report 6736441-7 (Version None)
Quarter: 2010Q2

REPORT INFORMATION
  Report Type: 
  Country: None (occurrence: None)
  Receive Date: 20100521
  Receipt Date: 20100517
  Transmission Date: 20101027
  Serious: Yes (Life-Threatening, Disabling)
  Sender: FDA-Public Use
  Company Number: GB-MERCK-1005GBR00054

PATIENT
  Age: 49 Year
  Sex: Female
  Weight: 86 kg

DRUGS (5)
  1. EMEND [Suspect]
     Indication: NAUSEA
     Route: 048
     Dates: start: 20100421
  2. AMITRIPTYLINE HYDROCHLORIDE [Concomitant]
     Route: 048
     Dates: start: 20081210
  3. CYCLOPHOSPHAMIDE [Concomitant]
     Route: 042
  4. EPIRUBICIN HYDROCHLORIDE [Concomitant]
     Indication: CHEMOTHERAPY
     Route: 042
  5. FLUOROURACIL [Concomitant]
     Route: 042

REACTIONS (2)
  - DYSPHAGIA [None]
  - HYPOREFLEXIA [None]
